FAERS Safety Report 6617407-4 (Version None)
Quarter: 2010Q1

REPORT INFORMATION
  Report Type: 
  Country: None (occurrence: None)
  Receive Date: 20100308
  Receipt Date: 20100222
  Transmission Date: 20100710
  Serious: Yes (Other)
  Sender: FDA-Public Use
  Company Number: US-BAYER-201014713NA

PATIENT
  Age: 24 Year
  Sex: Female

DRUGS (1)
  1. MIRENA [Suspect]
     Indication: DRUG USE FOR UNKNOWN INDICATION
     Dosage: MIRENA INSERTED AT TIME OF D+C FOR HEAVY BLEEDING
     Route: 015

REACTIONS (3)
  - INJURY [None]
  - MEDICAL DEVICE COMPLICATION [None]
  - SPINAL FRACTURE [None]
